FAERS Safety Report 6494264-0 (Version None)
Quarter: 2009Q4

REPORT INFORMATION
  Report Type: 
  Country: None (occurrence: None)
  Receive Date: 20091214
  Receipt Date: 20090127
  Transmission Date: 20100525
  Serious: No
  Sender: FDA-Public Use
  Company Number: US-BRISTOL-MYERS SQUIBB COMPANY-14489033

PATIENT
  Age: 20 Year
  Sex: Female

DRUGS (2)
  1. ABILIFY [Suspect]
  2. CYMBALTA [Interacting]

REACTIONS (2)
  - DRUG INTERACTION [None]
  - SWELLING [None]
